FAERS Safety Report 7235954-1 (Version None)
Quarter: 2011Q1

REPORT INFORMATION
  Report Type: 
  Country: None (occurrence: None)
  Receive Date: 20110120
  Receipt Date: 20110113
  Transmission Date: 20110831
  Serious: Yes (Congenital Anomaly)
  Sender: FDA-Public Use
  Company Number: A0906688A

PATIENT

DRUGS (5)
  1. KALETRA [Suspect]
     Indication: ANTIVIRAL TREATMENT
     Dosage: 4TAB PER DAY
     Dates: start: 20100727, end: 20101020
  2. NORVIR [Suspect]
     Indication: ANTIVIRAL TREATMENT
     Dosage: 100MG PER DAY
     Dates: start: 20101021
  3. TRUVADA [Suspect]
     Indication: ANTIVIRAL TREATMENT
     Dosage: 1TAB PER DAY
     Dates: start: 20101021
  4. COMBIVIR [Suspect]
     Indication: ANTIVIRAL TREATMENT
     Dosage: 2TAB PER DAY
     Dates: start: 20100727, end: 20101020
  5. REYATAZ [Suspect]
     Indication: ANTIVIRAL TREATMENT
     Dosage: 300MG PER DAY
     Dates: start: 20101021

REACTIONS (2)
  - DRUG EXPOSURE DURING PREGNANCY [None]
  - VENTRICULAR SEPTAL DEFECT [None]
